FAERS Safety Report 24448294 (Version 2)
Quarter: 2024Q4

REPORT INFORMATION
  Report Type: Spontaneous
  Country: US (occurrence: US)
  Receive Date: 20241017
  Receipt Date: 20241121
  Transmission Date: 20250115
  Serious: No
  Sender: ROCHE
  Company Number: US-ROCHE-10000105709

PATIENT
  Age: 35 Year
  Sex: Female
  Weight: 54.16 kg

DRUGS (2)
  1. XOLAIR PFS [Suspect]
     Active Substance: OMALIZUMAB
     Indication: Urticaria
     Dosage: 300MG/2ML
     Route: 058
     Dates: start: 20240918
  2. XOLAIR PFS [Suspect]
     Active Substance: OMALIZUMAB

REACTIONS (3)
  - Tongue pruritus [Recovered/Resolved]
  - Pruritus [Recovered/Resolved]
  - Eyelids pruritus [Recovered/Resolved]

NARRATIVE: CASE EVENT DATE: 20240923
